FAERS Safety Report 9735488 (Version 1)
Quarter: 2013Q4

REPORT INFORMATION
  Report Type: Spontaneous
  Country: US (occurrence: US)
  Receive Date: 20131206
  Receipt Date: 20131206
  Transmission Date: 20140711
  Serious: No
  Sender: FDA-Public Use
  Company Number: US-GILEAD-2009-0023357

PATIENT
  Sex: Male
  Weight: 79.38 kg

DRUGS (14)
  1. LETAIRIS [Suspect]
     Indication: PULMONARY ARTERIAL HYPERTENSION
     Route: 048
     Dates: start: 20090608
  2. ALPRAZOLAM [Concomitant]
  3. PREDNISOLONE [Concomitant]
  4. CELEXA [Concomitant]
  5. XOPENEX HFA [Concomitant]
  6. TYLENOL 8 HOUR [Concomitant]
  7. REVATIO [Concomitant]
  8. ENBREL [Concomitant]
  9. LISINOPRIL [Concomitant]
  10. AZITHROMYCIN [Concomitant]
  11. DIAZEPAM [Concomitant]
  12. ALBUTEROL [Concomitant]
  13. NIFEDIPINE ER [Concomitant]
  14. BACTRIM DS [Concomitant]

REACTIONS (1)
  - Neuralgia [Recovering/Resolving]
